FAERS Safety Report 9667005 (Version 1)
Quarter: 2013Q4

REPORT INFORMATION
  Report Type: Spontaneous
  Country: DE (occurrence: DE)
  Receive Date: 20131104
  Receipt Date: 20131104
  Transmission Date: 20140711
  Serious: Yes (Death, Other)
  Sender: FDA-Public Use
  Company Number: DE-JHP PHARMACEUTICALS, LLC-JHP201300641

PATIENT
  Age: 32 Year
  Sex: Female
  Weight: 100 kg

DRUGS (9)
  1. COLY-MYCIN M PARENTERAL [Suspect]
     Indication: PSEUDOMONAS INFECTION
     Dosage: 9 MILLION IU, LOADING DOSE
     Route: 042
  2. COLY-MYCIN M PARENTERAL [Suspect]
     Dosage: 3 X 3 MU
     Route: 042
  3. COLY-MYCIN M PARENTERAL [Suspect]
     Dosage: 3 X 6 MU DAILY
     Route: 042
  4. COLY-MYCIN M PARENTERAL [Suspect]
     Dosage: 3 X 3 MU
     Route: 042
  5. COLY-MYCIN M PARENTERAL [Suspect]
     Dosage: 3 X 2 MU
     Route: 042
  6. VANCOMYCIN [Suspect]
     Dosage: 2 X 1 G
  7. MEROPENEM [Suspect]
     Dosage: 3 X 1 G
  8. CASPOFUNGIN [Suspect]
     Dosage: 70 MG, DAILY
  9. CASPOFUNGIN [Suspect]
     Dosage: 50 MG, DAILY

REACTIONS (2)
  - Renal impairment [Unknown]
  - Multi-organ failure [Fatal]
